FAERS Safety Report 11415603 (Version 1)
Quarter: 2015Q3

REPORT INFORMATION
  Report Type: Spontaneous
  Country: US (occurrence: None)
  Receive Date: 20150824
  Receipt Date: 20150824
  Transmission Date: 20151125
  Serious: Yes (Disabling)
  Sender: FDA-Public Use
  Company Number: None

PATIENT
  Age: 66 Year
  Sex: Male
  Weight: 89.81 kg

DRUGS (23)
  1. L-DOPA MUCUNA [Concomitant]
  2. HYLUONICACID [Concomitant]
  3. PROBIOTIC-4 [Concomitant]
  4. METOPROLOL TARTRATE 25MG TABLET [Suspect]
     Active Substance: METOPROLOL TARTRATE
     Indication: STENT PLACEMENT
     Dosage: 1/2 ONE
     Route: 048
  5. COQ10 [Concomitant]
     Active Substance: UBIDECARENONE
  6. SEMSC SELENIUM [Concomitant]
  7. VITAMIN B12 [Concomitant]
     Active Substance: CYANOCOBALAMIN
  8. GLUCOSAMUNE SULFATE [Concomitant]
  9. CISSUS QUADRANGULARIS [Concomitant]
  10. GUGGUL [Concomitant]
  11. DEVILS CLAW [Concomitant]
     Active Substance: HERBS\UNSPECIFIED INGREDIENT
  12. L-CARNITINE [Concomitant]
     Active Substance: LEVOCARNITINE
  13. MSM [Concomitant]
     Active Substance: DIMETHYL SULFONE
  14. RED YEAST RICE [Concomitant]
     Active Substance: DIETARY SUPPLEMENT
  15. TRIMETHYGLYCINE [Concomitant]
  16. S-ADENOSYLMETHIONINE SULFATE P-TOLUENESULFONATE [Concomitant]
     Active Substance: ADEMETIONINE SULFATE TOSILATE
  17. VIT-D3 [Concomitant]
  18. TURMERIC [Concomitant]
     Active Substance: TURMERIC
  19. METOPROLOL TARTRATE 25MG TABLET [Suspect]
     Active Substance: METOPROLOL TARTRATE
     Indication: DRUG THERAPY
     Dosage: 1/2 ONE
     Route: 048
  20. VIT-E [Concomitant]
  21. GINGER. [Concomitant]
     Active Substance: GINGER
  22. PYCNOGENOL [Concomitant]
     Active Substance: DIETARY SUPPLEMENT
  23. L-ARGININE [Concomitant]
     Active Substance: ARGININE

REACTIONS (4)
  - Osteonecrosis [None]
  - Fall [None]
  - Quality of life decreased [None]
  - Pain [None]

NARRATIVE: CASE EVENT DATE: 20140813
